FAERS Safety Report 23358749 (Version 1)
Quarter: 2024Q1

REPORT INFORMATION
  Report Type: Spontaneous
  Country: CZ (occurrence: CZ)
  Receive Date: 20240102
  Receipt Date: 20240102
  Transmission Date: 20240410
  Serious: Yes (Life-Threatening, Hospitalization, Other)
  Sender: FDA-Public Use
  Company Number: None

PATIENT
  Age: 65 Year
  Sex: Female
  Weight: 100 kg

DRUGS (11)
  1. PACLITAXEL [Suspect]
     Active Substance: PACLITAXEL
     Indication: Breast cancer metastatic
     Dosage: FORM OF ADMINISTRATION CONCENTRATE FOR SOLUTION FOR INFUSION?DOSE: 160 MG
     Route: 042
     Dates: start: 20231212, end: 20231212
  2. XGEVA [Concomitant]
     Active Substance: DENOSUMAB
     Indication: Product used for unknown indication
     Dosage: 120 MG
     Route: 058
     Dates: start: 20231128
  3. Apo-parox 20mg [Concomitant]
     Indication: Product used for unknown indication
     Dosage: 1-0-0
     Route: 048
  4. Tritace 5mg [Concomitant]
     Indication: Product used for unknown indication
     Dosage: 1-0-0
     Route: 048
  5. Betahistin Actavis 16mg [Concomitant]
     Indication: Product used for unknown indication
     Dosage: 0-1-1
     Route: 048
  6. Gabanox 300mg [Concomitant]
     Indication: Product used for unknown indication
     Dosage: 0-0-1?300 MG
     Route: 048
  7. Glepark [Concomitant]
     Indication: Product used for unknown indication
     Dosage: 0-1-1
     Route: 048
  8. Concor 2,5mg [Concomitant]
     Indication: Product used for unknown indication
     Dosage: 1-0-0
     Route: 048
  9. Morfin [Concomitant]
     Indication: Product used for unknown indication
     Dosage: 3 DROPS 3 TIMES A DAY, THEN TITRATION ACCORDING TO THE TOLERANCE AND EFFECT
     Route: 048
  10. Nolpaza 20mg [Concomitant]
     Indication: Product used for unknown indication
     Dosage: 1-0-1
     Route: 048
  11. Euthyrox 50ug [Concomitant]
     Indication: Product used for unknown indication
     Dosage: 1-0-0
     Route: 048

REACTIONS (7)
  - Seizure [Recovering/Resolving]
  - Cyanosis [Recovering/Resolving]
  - Dyspnoea [Recovering/Resolving]
  - Drug hypersensitivity [Recovering/Resolving]
  - Altered state of consciousness [Recovering/Resolving]
  - Somnolence [Recovering/Resolving]
  - Anaphylactic reaction [Recovering/Resolving]

NARRATIVE: CASE EVENT DATE: 20231212
